FAERS Safety Report 6752599-8 (Version None)
Quarter: 2010Q2

REPORT INFORMATION
  Report Type: 
  Country: None (occurrence: None)
  Receive Date: 20100601
  Receipt Date: 20100601
  Transmission Date: 20101027
  Serious: Yes (Hospitalization)
  Sender: FDA-Public Use
  Company Number: None

PATIENT
  Age: 44 Year
  Sex: Female
  Weight: 67.1324 kg

DRUGS (2)
  1. AMPHETAMINE ER -GEN ADDERALL XR- 20 MG CAP TEV FROM WALMART PHARM [Suspect]
     Indication: ATTENTION DEFICIT/HYPERACTIVITY DISORDER
     Dosage: 20 MG DAILY IN AM PO
     Route: 048
     Dates: start: 20100501
  2. DIPHENHYDRAMINE HYDROCHLORIDE [Suspect]
     Indication: INSOMNIA
     Dosage: 25 MG INTERMITTENT PM PO, INTERMITTENT FOR YEARS
     Route: 048

REACTIONS (7)
  - FATIGUE [None]
  - HYPOAESTHESIA [None]
  - NERVOUS SYSTEM DISORDER [None]
  - PALPITATIONS [None]
  - PARAESTHESIA [None]
  - PRESYNCOPE [None]
  - SINUS TACHYCARDIA [None]
